FAERS Safety Report 6616099-8 (Version None)
Quarter: 2010Q1

REPORT INFORMATION
  Report Type: 
  Country: None (occurrence: None)
  Receive Date: 20100305
  Receipt Date: 20100301
  Transmission Date: 20100710
  Serious: Yes (Hospitalization)
  Sender: FDA-Public Use
  Company Number: US-MERCK-1003USA00207

PATIENT
  Age: 65 Year
  Sex: Female

DRUGS (4)
  1. JANUVIA [Suspect]
     Indication: DIABETES MELLITUS
     Route: 048
     Dates: start: 20050101, end: 20100101
  2. JANUVIA [Suspect]
     Route: 048
     Dates: start: 20100201, end: 20100225
  3. METFORMIN [Concomitant]
     Route: 048
  4. NOVOLOG [Concomitant]
     Route: 065

REACTIONS (4)
  - DYSPNOEA [None]
  - PHARYNGEAL OEDEMA [None]
  - SWELLING FACE [None]
  - SWOLLEN TONGUE [None]
